FAERS Safety Report 9548642 (Version 1)
Quarter: 2013Q3

REPORT INFORMATION
  Report Type: Spontaneous
  Country: GB (occurrence: GB)
  Receive Date: 20130924
  Receipt Date: 20130924
  Transmission Date: 20140515
  Serious: Yes (Other)
  Sender: FDA-Public Use
  Company Number: GB-TAKEDA-2013TJP001021

PATIENT
  Sex: 0

DRUGS (13)
  1. LANSOPRAZOLE [Suspect]
     Indication: GASTROOESOPHAGEAL REFLUX DISEASE
     Dosage: 15 MG UNIT DOSE
     Route: 048
     Dates: start: 20130813, end: 20130823
  2. LANSOPRAZOLE [Suspect]
     Dosage: 15 MG UNIT DOSE
     Route: 048
     Dates: start: 20130823, end: 20130903
  3. LISINOPRIL [Concomitant]
  4. TAMSULOSIN HYDROCHLORIDE [Concomitant]
  5. PROPRANOLOL [Concomitant]
  6. FELODIPINE [Concomitant]
  7. METFORMIN [Concomitant]
  8. GLICLAZIDE [Concomitant]
  9. SIMVASTATIN [Concomitant]
  10. SAW PALMETTO                       /00833501/ [Concomitant]
  11. VITAMIN D3 [Concomitant]
  12. SELENIUM [Concomitant]
  13. ACETYLSALICYLIC ACID [Concomitant]

REACTIONS (3)
  - Drug ineffective [Not Recovered/Not Resolved]
  - Product substitution issue [Unknown]
  - Discomfort [Unknown]
